FAERS Safety Report 25474099 (Version 1)
Quarter: 2025Q2

REPORT INFORMATION
  Report Type: Spontaneous
  Country: US (occurrence: US)
  Receive Date: 20250624
  Receipt Date: 20250624
  Transmission Date: 20250716
  Serious: No
  Sender: KRAMER LABORATORIES
  Company Number: US-KRAMERLABS-2025-US-020254

PATIENT
  Age: 87 Year
  Sex: Male
  Weight: 104.33 kg

DRUGS (1)
  1. NIZORAL [Suspect]
     Active Substance: KETOCONAZOLE
     Indication: Dandruff
     Route: 061
     Dates: start: 202406, end: 20250423

REACTIONS (2)
  - Intentional product misuse [Recovered/Resolved]
  - Application site pain [Not Recovered/Not Resolved]

NARRATIVE: CASE EVENT DATE: 20240601
